FAERS Safety Report 9299368 (Version 2)
Quarter: 2013Q4

REPORT INFORMATION
  Report Type: Spontaneous
  Country: US (occurrence: US)
  Receive Date: 20130520
  Receipt Date: 20131108
  Transmission Date: 20140711
  Serious: Yes (Hospitalization)
  Sender: FDA-Public Use
  Company Number: US-B.I. PHARMACEUTICALS,INC./RIDGEFIELD-2013-BI-13778BP

PATIENT
  Sex: Male
  Weight: 158.75 kg

DRUGS (2)
  1. PRADAXA [Suspect]
     Indication: ANTICOAGULANT THERAPY
     Dates: start: 20111020, end: 20120403
  2. ATORVASTATIN [Concomitant]

REACTIONS (3)
  - Haemorrhagic anaemia [Unknown]
  - Iron deficiency [Unknown]
  - Gastrointestinal haemorrhage [Unknown]
